FAERS Safety Report 22586236 (Version 7)
Quarter: 2024Q2

REPORT INFORMATION
  Report Type: Spontaneous
  Country: US (occurrence: US)
  Receive Date: 20230610
  Receipt Date: 20240504
  Transmission Date: 20240715
  Serious: Yes (Death, Hospitalization, Other)
  Sender: FDA-Public Use
  Company Number: US-002147023-NVSC2023US132234

PATIENT
  Age: 54 Year
  Sex: Male
  Weight: 80.7 kg

DRUGS (4)
  1. MEKINIST [Suspect]
     Active Substance: TRAMETINIB DIMETHYL SULFOXIDE
     Indication: Brain neoplasm malignant
     Dosage: 2 MG, QD
     Route: 048
     Dates: start: 20230321
  2. TAFINLAR [Suspect]
     Active Substance: DABRAFENIB MESYLATE
     Indication: Brain neoplasm malignant
     Dosage: 150 MG, BID (EVERY 12 HOURS)
     Route: 048
     Dates: start: 20230321
  3. QUETIAPINE [Concomitant]
     Active Substance: QUETIAPINE
     Indication: Product used for unknown indication
     Dosage: UNK
     Route: 065
  4. METOPROLOL [Concomitant]
     Active Substance: METOPROLOL
     Indication: Product used for unknown indication
     Dosage: UNK
     Route: 065

REACTIONS (14)
  - Death [Fatal]
  - Pulmonary embolism [Unknown]
  - Asthenia [Unknown]
  - Seizure [Unknown]
  - COVID-19 [Recovered/Resolved]
  - Blood electrolytes abnormal [Recovered/Resolved]
  - Sepsis [Unknown]
  - Toxic encephalopathy [Unknown]
  - Headache [Unknown]
  - General physical condition abnormal [Recovering/Resolving]
  - Mental status changes [Recovering/Resolving]
  - Urinary tract infection [Unknown]
  - Confusional state [Unknown]
  - Product use in unapproved indication [Unknown]

NARRATIVE: CASE EVENT DATE: 20240129
